FAERS Safety Report 14384425 (Version 2)
Quarter: 2018Q1

REPORT INFORMATION
  Report Type: Spontaneous
  Country: US (occurrence: US)
  Receive Date: 20180115
  Receipt Date: 20180305
  Transmission Date: 20180509
  Serious: Yes (Death, Life-Threatening, Hospitalization, Other)
  Sender: FDA-Public Use
  Company Number: US-SUN PHARMACEUTICAL INDUSTRIES LTD-2018US-160036

PATIENT
  Age: 62 Year
  Sex: Male

DRUGS (2)
  1. CLOZAPINE. [Suspect]
     Active Substance: CLOZAPINE
     Indication: SCHIZOPHRENIA
     Dosage: 12.5 MG, DAILY
     Route: 065
  2. CLOZAPINE. [Suspect]
     Active Substance: CLOZAPINE
     Dosage: 75 MG, DAILY
     Route: 065

REACTIONS (8)
  - Unresponsive to stimuli [Unknown]
  - Hypoxia [Not Recovered/Not Resolved]
  - Sepsis [Fatal]
  - Septic shock [Unknown]
  - Pneumonia aspiration [Unknown]
  - Cardiac failure congestive [Unknown]
  - Myocardial necrosis marker increased [Unknown]
  - Hypotension [Unknown]
